FAERS Safety Report 7379944-7 (Version None)
Quarter: 2011Q1

REPORT INFORMATION
  Report Type: 
  Country: None (occurrence: None)
  Receive Date: 20110329
  Receipt Date: 20110315
  Transmission Date: 20110831
  Serious: Yes (Hospitalization, Other)
  Sender: FDA-Public Use
  Company Number: PHHY2011US16348

PATIENT
  Sex: Female

DRUGS (6)
  1. XANAX [Concomitant]
     Route: 048
  2. MOBIC [Concomitant]
     Route: 048
  3. CELEXA [Concomitant]
     Route: 048
  4. PRILOZAN [Concomitant]
  5. FEMARA [Suspect]
     Indication: BREAST CANCER
     Dosage: 2.5 MG, QD
     Route: 048
     Dates: start: 20090101
  6. SOLEXA [Concomitant]

REACTIONS (12)
  - DEHYDRATION [None]
  - MIGRAINE [None]
  - NAUSEA [None]
  - WHEEZING [None]
  - LOSS OF CONSCIOUSNESS [None]
  - PNEUMONIA BACTERIAL [None]
  - CREPITATIONS [None]
  - FATIGUE [None]
  - BRONCHITIS [None]
  - DYSPNOEA [None]
  - MALAISE [None]
  - DIARRHOEA [None]
